FAERS Safety Report 22133176 (Version 3)
Quarter: 2023Q2

REPORT INFORMATION
  Report Type: Spontaneous
  Country: US (occurrence: US)
  Receive Date: 20230324
  Receipt Date: 20230501
  Transmission Date: 20230722
  Serious: No
  Sender: FDA-Public Use
  Company Number: US-GLAXOSMITHKLINE-US2023AMR043641

PATIENT
  Age: 64 Year
  Sex: Female
  Weight: 95 kg

DRUGS (1)
  1. ZEJULA [Suspect]
     Active Substance: NIRAPARIB
     Indication: Endometrial cancer
     Dosage: 200 MG, QD (FOR 15 DAYS)
     Route: 048
     Dates: start: 20230313

REACTIONS (8)
  - Blood pressure increased [Recovering/Resolving]
  - Headache [Unknown]
  - Nausea [Recovering/Resolving]
  - Sleep disorder [Unknown]
  - Incisional hernia [Not Recovered/Not Resolved]
  - Adverse drug reaction [Unknown]
  - Intentional dose omission [Unknown]
  - Product use in unapproved indication [Unknown]

NARRATIVE: CASE EVENT DATE: 20230301
